FAERS Safety Report 19257455 (Version 1)
Quarter: 2021Q2

REPORT INFORMATION
  Report Type: Report from Study
  Country: None (occurrence: IL)
  Receive Date: 20210513
  Receipt Date: 20210513
  Transmission Date: 20210717
  Serious: Yes (Death, Life-Threatening)
  Sender: FDA-Public Use
  Company Number: IL-ABBVIE-21K-082-3904290-00

PATIENT
  Age: 87 Year
  Sex: Female
  Weight: 92 kg

DRUGS (20)
  1. AZACITIDINE. [Suspect]
     Active Substance: AZACITIDINE
     Dosage: 100 MG, CYCLE 2
     Route: 042
     Dates: start: 20200508, end: 20200529
  2. AZACITIDINE. [Suspect]
     Active Substance: AZACITIDINE
     Dosage: 100 MG, CYCLE 3
     Route: 042
     Dates: start: 20200712, end: 20200720
  3. AZACITIDINE. [Suspect]
     Active Substance: AZACITIDINE
     Dosage: 100 MG, CYCLE 4
     Route: 065
     Dates: start: 20200809, end: 20200817
  4. VENETOCLAX. [Suspect]
     Active Substance: VENETOCLAX
     Dosage: 200 MG, RAMP UP
     Route: 048
     Dates: start: 20200425, end: 20200426
  5. VENETOCLAX. [Suspect]
     Active Substance: VENETOCLAX
     Dosage: 400 MG, MODIFICATION TO THE DAILY DOSE ? DOSE REDUCTION ? ADVERSE EVENT
     Route: 048
     Dates: start: 20200429, end: 20200622
  6. AZACITIDINE. [Suspect]
     Active Substance: AZACITIDINE
     Indication: ACUTE MYELOID LEUKAEMIA
     Dosage: 100 MG, CYCLE 1
     Route: 042
     Dates: start: 20200419, end: 20200429
  7. AZACITIDINE. [Suspect]
     Active Substance: AZACITIDINE
     Dosage: 100 MG, CYCLE 5
     Route: 065
     Dates: start: 20200906, end: 20200914
  8. AZACITIDINE. [Suspect]
     Active Substance: AZACITIDINE
     Dosage: 100 MG, CYCLE 6
     Route: 065
     Dates: start: 20201011, end: 20201019
  9. VENETOCLAX. [Suspect]
     Active Substance: VENETOCLAX
     Dosage: 200 MG, INTERRUPTION
     Route: 048
     Dates: start: 20200622, end: 20200803
  10. AMLOW [Concomitant]
     Active Substance: AMLODIPINE MALEATE
     Indication: ANGINA PECTORIS
  11. VENETOCLAX. [Suspect]
     Active Substance: VENETOCLAX
     Dosage: 300 MG, RAMP UP
     Route: 048
     Dates: start: 20200427, end: 20200428
  12. VENETOCLAX. [Suspect]
     Active Substance: VENETOCLAX
     Dosage: 300 MG, INTERRUPTION
     Route: 048
     Dates: start: 20201019, end: 20201208
  13. AZACITIDINE. [Suspect]
     Active Substance: AZACITIDINE
     Dosage: 100 MG, CYCLE 8
     Route: 065
     Dates: start: 20201206, end: 20201214
  14. ELTROXIN [Concomitant]
     Active Substance: LEVOTHYROXINE
     Indication: HYPOTHYROIDISM
     Dates: start: 2000
  15. VENETOCLAX. [Suspect]
     Active Substance: VENETOCLAX
     Indication: ACUTE MYELOID LEUKAEMIA
     Dosage: 100 MG, RAMP UP
     Route: 048
     Dates: start: 20200423, end: 20200424
  16. AMLOW [Concomitant]
     Active Substance: AMLODIPINE MALEATE
     Indication: HYPERTENSION
     Dates: start: 2000
  17. AZACITIDINE. [Suspect]
     Active Substance: AZACITIDINE
     Dosage: 100 MG, CYCLE 7
     Route: 065
     Dates: start: 20201108, end: 20201116
  18. AZACITIDINE. [Suspect]
     Active Substance: AZACITIDINE
     Dosage: 100 MG, CYCLE 9
     Route: 065
     Dates: start: 20210103, end: 20210111
  19. SIMVASTATIN. [Concomitant]
     Active Substance: SIMVASTATIN
     Indication: HYPOTHYROIDISM
     Dates: start: 2000
  20. ATENOLOL. [Concomitant]
     Active Substance: ATENOLOL
     Indication: HYPERTENSION
     Dates: start: 20180404

REACTIONS (3)
  - Death [Fatal]
  - Neutropenia [Not Recovered/Not Resolved]
  - Cytopenia [Not Recovered/Not Resolved]

NARRATIVE: CASE EVENT DATE: 20200423
